FAERS Safety Report 22298615 (Version 1)
Quarter: 2023Q2

REPORT INFORMATION
  Report Type: Spontaneous
  Country: PT (occurrence: PT)
  Receive Date: 20230509
  Receipt Date: 20230509
  Transmission Date: 20230721
  Serious: Yes (Hospitalization)
  Sender: FDA-Public Use
  Company Number: None

PATIENT
  Age: 43 Year
  Sex: Male
  Weight: 80 kg

DRUGS (7)
  1. ARTEMETHER\LUMEFANTRINE [Suspect]
     Active Substance: ARTEMETHER\LUMEFANTRINE
     Indication: Malaria
     Dosage: UNK (STRENGTH: 20 MG + 120 MG) (80MG 12/12H, MADE 6 ADMINISTRATIONS (NO MORE DETAILED INFORMATION))
     Route: 048
     Dates: start: 20230223, end: 20230226
  2. ARTESUNATE [Suspect]
     Active Substance: ARTESUNATE
     Indication: Malaria
     Dosage: 164 MG, Q12H (FOR 72 HOURS, MADE 6 ADMINISTRATIONS (2.4MG/KG EV)
     Route: 042
     Dates: start: 20230220, end: 20230223
  3. IBUPROFEN [Concomitant]
     Active Substance: IBUPROFEN
     Indication: Product used for unknown indication
     Dosage: UNK (UP TO 3 X DAY)
     Route: 048
  4. ACETAMINOPHEN [Concomitant]
     Active Substance: ACETAMINOPHEN
     Indication: Product used for unknown indication
     Dosage: UNK (SOS UP TO 3 X DAY)
     Route: 042
  5. METAMIZOLE MAGNESIUM [Concomitant]
     Active Substance: METAMIZOLE MAGNESIUM
     Indication: Product used for unknown indication
     Dosage: UNK (SOS UP TO 2 X DAY)
     Route: 065
  6. ASPIRIN DL-LYSINE [Concomitant]
     Active Substance: ASPIRIN DL-LYSINE
     Indication: Product used for unknown indication
     Dosage: UNK (SOS UP TO 3 X DAY)
     Route: 065
  7. BISACODILO [Concomitant]
     Indication: Product used for unknown indication
     Dosage: UNK (12/12H )
     Route: 048

REACTIONS (1)
  - Haemolytic anaemia [Recovering/Resolving]

NARRATIVE: CASE EVENT DATE: 20230306
